FAERS Safety Report 9309527 (Version 1)
Quarter: 2013Q2

REPORT INFORMATION
  Report Type: Spontaneous
  Country: US (occurrence: US)
  Receive Date: 20130525
  Receipt Date: 20130525
  Transmission Date: 20140414
  Serious: No
  Sender: FDA-Public Use
  Company Number: US-BRISTOL-MYERS SQUIBB COMPANY-17459157

PATIENT
  Age: 72 Year
  Sex: Female

DRUGS (5)
  1. BYDUREON [Suspect]
     Indication: TYPE 2 DIABETES MELLITUS
     Dosage: LONG ACTING RELEASE 2MG
     Route: 058
  2. BYETTA [Concomitant]
     Indication: TYPE 2 DIABETES MELLITUS
  3. METFORMIN [Concomitant]
     Route: 048
  4. HUMULIN [Concomitant]
     Indication: TYPE 2 DIABETES MELLITUS
     Dosage: 25 UNITS EVERY EVENING?10 UNITS EVERY MORNING
  5. HUMALOG [Concomitant]
     Indication: TYPE 2 DIABETES MELLITUS

REACTIONS (3)
  - Injection site nodule [Not Recovered/Not Resolved]
  - Injection site pain [Unknown]
  - Off label use [Not Recovered/Not Resolved]
